FAERS Safety Report 5212362-6 (Version None)
Quarter: 2006Q4

REPORT INFORMATION
  Report Type: 
  Country: None (occurrence: None)
  Receive Date: 20061130
  Receipt Date: 20060828
  Transmission Date: 20070319
  Serious: Yes (Other)
  Sender: FDA-Public Use
  Company Number: WAES 0608USA06748

PATIENT
  Age: 59 Year
  Sex: Female
  Weight: 64.8644 kg

DRUGS (6)
  1. FOSAMAX [Suspect]
     Indication: OSTEOPOROSIS
     Dosage: 10 MG/DAILY/PO; 70 MG/WKY/PO
     Route: 048
     Dates: start: 20020101, end: 20040101
  2. FOSAMAX [Suspect]
     Indication: OSTEOPOROSIS
     Dosage: 10 MG/DAILY/PO; 70 MG/WKY/PO
     Route: 048
     Dates: start: 20040101, end: 20060601
  3. HUMIRA [Concomitant]
  4. LANOXIN [Concomitant]
  5. METHOTREXATE [Concomitant]
  6. VERAPAMIL [Concomitant]

REACTIONS (1)
  - OSTEONECROSIS [None]
